FAERS Safety Report 7618432-7 (Version None)
Quarter: 2011Q3

REPORT INFORMATION
  Report Type: 
  Country: None (occurrence: None)
  Receive Date: 20110718
  Receipt Date: 20110712
  Transmission Date: 20111222
  Serious: Yes (Death)
  Sender: FDA-Public Use
  Company Number: EG-PFIZER INC-2011158467

PATIENT
  Age: 72 Year
  Sex: Female

DRUGS (3)
  1. CEFTAZIDIME [Concomitant]
     Indication: NOSOCOMIAL INFECTION
     Dosage: 1 G, 2X/DAY
     Route: 042
     Dates: start: 20110709, end: 20110712
  2. LEVOFLOXACIN [Concomitant]
     Indication: NOSOCOMIAL INFECTION
     Dosage: 500 MG, ALTERNATE DAY
     Route: 042
     Dates: start: 20110709, end: 20110712
  3. ZYVOX [Suspect]
     Indication: SEPTIC SHOCK
     Dosage: 600 MG, 2X/DAY
     Route: 042
     Dates: start: 20110709

REACTIONS (2)
  - SHOCK HAEMORRHAGIC [None]
  - RENAL FAILURE [None]
